FAERS Safety Report 10396339 (Version 1)
Quarter: 2014Q3

REPORT INFORMATION
  Report Type: Spontaneous
  Country: US (occurrence: US)
  Receive Date: 20140820
  Receipt Date: 20140820
  Transmission Date: 20150326
  Serious: Yes (Hospitalization, Other)
  Sender: FDA-Public Use
  Company Number: US-BAYER-2014-122671

PATIENT
  Age: 26 Year
  Sex: Female

DRUGS (6)
  1. YASMIN [Suspect]
     Active Substance: DROSPIRENONE\ETHINYL ESTRADIOL
  2. PHENERGAN [Concomitant]
     Active Substance: PROMETHAZINE HYDROCHLORIDE
  3. REPLAS [Concomitant]
  4. NAPROSYN [Concomitant]
     Active Substance: NAPROXEN
  5. TORADOL [Concomitant]
     Active Substance: KETOROLAC TROMETHAMINE
  6. AUGMENTIN [Concomitant]
     Active Substance: AMOXICILLIN\CLAVULANATE POTASSIUM

REACTIONS (3)
  - Cholelithiasis [None]
  - Transverse sinus thrombosis [None]
  - Cerebral venous thrombosis [None]

NARRATIVE: CASE EVENT DATE: 20050516
